FAERS Safety Report 8590048-8 (Version None)
Quarter: 2012Q3

REPORT INFORMATION
  Report Type: 
  Country: None (occurrence: None)
  Receive Date: 20120813
  Receipt Date: 20120802
  Transmission Date: 20120928
  Serious: No
  Sender: FDA-Public Use
  Company Number: US-BAYER-2012-079117

PATIENT
  Sex: Female

DRUGS (2)
  1. ACETAMINOPHEN [Concomitant]
  2. CLIMARA [Suspect]
     Indication: MENOPAUSE
     Dosage: UNK
     Dates: start: 20120101

REACTIONS (1)
  - HOT FLUSH [None]
